FAERS Safety Report 21074202 (Version 1)
Quarter: 2022Q3

REPORT INFORMATION
  Report Type: Spontaneous
  Country: NL (occurrence: NL)
  Receive Date: 20220713
  Receipt Date: 20220713
  Transmission Date: 20221027
  Serious: Yes (Other)
  Sender: FDA-Public Use
  Company Number: NL-009507513-2207NLD002369

PATIENT
  Age: 60 Year
  Sex: Female

DRUGS (3)
  1. PEMBROLIZUMAB [Suspect]
     Active Substance: PEMBROLIZUMAB
     Indication: Non-small cell lung cancer stage IV
     Dosage: (CYCLE 1) UNK UNK, Q3W
     Dates: start: 20190826, end: 20190826
  2. PEMBROLIZUMAB [Suspect]
     Active Substance: PEMBROLIZUMAB
     Dosage: (CYCLE 2) UNK UNK, Q3W
     Dates: start: 20190916, end: 20190916
  3. PEMBROLIZUMAB [Suspect]
     Active Substance: PEMBROLIZUMAB
     Dosage: (CYCLE 3) UNK UNK, Q3W
     Dates: start: 20191007, end: 20191007

REACTIONS (4)
  - Immune-mediated neuropathy [Unknown]
  - Immune-mediated thyroiditis [Unknown]
  - Immune-mediated enterocolitis [Unknown]
  - Immune-mediated dermatitis [Unknown]
